FAERS Safety Report 6846311-1 (Version None)
Quarter: 2010Q3

REPORT INFORMATION
  Report Type: 
  Country: None (occurrence: None)
  Receive Date: 20100715
  Receipt Date: 20070917
  Transmission Date: 20110219
  Serious: No
  Sender: FDA-Public Use
  Company Number: US-PFIZER INC-2007078014

PATIENT
  Sex: Female
  Weight: 45.9 kg

DRUGS (6)
  1. CHANTIX [Suspect]
     Indication: SMOKING CESSATION THERAPY
     Dates: start: 20070401
  2. PAXIL [Concomitant]
  3. WELLBUTRIN [Concomitant]
  4. LEVOXYL [Concomitant]
  5. HALCION [Concomitant]
     Indication: SLEEP DISORDER
  6. CONTRACEPTIVE, UNSPECIFIED [Concomitant]

REACTIONS (1)
  - WEIGHT DECREASED [None]
